FAERS Safety Report 12549566 (Version 2)
Quarter: 2017Q3

REPORT INFORMATION
  Report Type: Report from Study
  Country: None (occurrence: US)
  Receive Date: 20160712
  Receipt Date: 20170823
  Transmission Date: 20171127
  Serious: Yes (Hospitalization, Other)
  Sender: FDA-Public Use
  Company Number: US-ABBVIE-16K-163-1669556-00

PATIENT
  Age: 65 Year
  Sex: Female

DRUGS (2)
  1. HUMIRA [Suspect]
     Active Substance: ADALIMUMAB
     Indication: PSORIATIC ARTHROPATHY
     Route: 058
     Dates: start: 2006
  2. HUMIRA [Suspect]
     Active Substance: ADALIMUMAB
     Route: 058

REACTIONS (35)
  - Gastric disorder [Not Recovered/Not Resolved]
  - Laceration [Not Recovered/Not Resolved]
  - Arthropathy [Recovered/Resolved]
  - Dyspnoea [Unknown]
  - Bronchitis [Unknown]
  - Precancerous cells present [Unknown]
  - Meniscus injury [Unknown]
  - Myocardial infarction [Unknown]
  - Fall [Recovered/Resolved]
  - Vasoconstriction [Unknown]
  - Musculoskeletal disorder [Unknown]
  - Limb injury [Unknown]
  - Sputum discoloured [Unknown]
  - Fall [Recovered/Resolved]
  - Peripheral swelling [Recovered/Resolved]
  - Malaise [Unknown]
  - Tinnitus [Unknown]
  - Foot fracture [Unknown]
  - Hypersensitivity [Not Recovered/Not Resolved]
  - Myalgia [Unknown]
  - Ligament sprain [Unknown]
  - Sinusitis [Unknown]
  - Weight decreased [Unknown]
  - Hypothyroidism [Not Recovered/Not Resolved]
  - Back injury [Not Recovered/Not Resolved]
  - Gastrooesophageal reflux disease [Not Recovered/Not Resolved]
  - Large intestine polyp [Unknown]
  - Fall [Recovered/Resolved]
  - Increased tendency to bruise [Unknown]
  - Injury [Unknown]
  - Fall [Unknown]
  - Arthralgia [Unknown]
  - Stress cardiomyopathy [Unknown]
  - Arthropod sting [Recovered/Resolved]
  - Asthma [Not Recovered/Not Resolved]

NARRATIVE: CASE EVENT DATE: 2006
